FAERS Safety Report 17807060 (Version 1)
Quarter: 2020Q2

REPORT INFORMATION
  Report Type: Spontaneous
  Country: US (occurrence: US)
  Receive Date: 20200520
  Receipt Date: 20200520
  Transmission Date: 20200714
  Serious: No
  Sender: FDA-Public Use
  Company Number: None

PATIENT
  Age: 74 Year
  Sex: Female
  Weight: 66.15 kg

DRUGS (12)
  1. XARELTO [Concomitant]
     Active Substance: RIVAROXABAN
  2. PRILOSEC [Concomitant]
     Active Substance: OMEPRAZOLE MAGNESIUM
  3. TYLENOL [Concomitant]
     Active Substance: ACETAMINOPHEN
  4. VITAMIN B12 [Concomitant]
     Active Substance: CYANOCOBALAMIN
  5. MAGNESIUM [Concomitant]
     Active Substance: MAGNESIUM
  6. PROLIA [Concomitant]
     Active Substance: DENOSUMAB
  7. REVLIMID [Concomitant]
     Active Substance: LENALIDOMIDE
  8. NINLARO [Suspect]
     Active Substance: IXAZOMIB CITRATE
     Indication: PLASMA CELL MYELOMA
     Route: 048
     Dates: start: 20200506
  9. ACYCLOVIR. [Concomitant]
     Active Substance: ACYCLOVIR
  10. BENADRYL [Concomitant]
     Active Substance: DIPHENHYDRAMINE HYDROCHLORIDE
  11. CALCIUM [Concomitant]
     Active Substance: CALCIUM
  12. CRANBERRY. [Concomitant]
     Active Substance: CRANBERRY

REACTIONS (3)
  - Asthenia [None]
  - Muscular weakness [None]
  - Fatigue [None]

NARRATIVE: CASE EVENT DATE: 20200520
